FAERS Safety Report 7311637-4 (Version None)
Quarter: 2011Q1

REPORT INFORMATION
  Report Type: 
  Country: None (occurrence: None)
  Receive Date: 20110224
  Receipt Date: 20101101
  Transmission Date: 20110831
  Serious: No
  Sender: FDA-Public Use
  Company Number: US-BAYER-201023340BCC

PATIENT
  Sex: Male

DRUGS (11)
  1. ASPIRIN [Concomitant]
  2. ALEVE [Suspect]
     Indication: BACK PAIN
     Route: 048
  3. FLOMAX [Concomitant]
  4. LISINOPRIL [Concomitant]
  5. EMLODIN [Concomitant]
  6. UNCODEABLE ^UNCLASSIFIABLE^ [Concomitant]
  7. BICALUTAMIDE [Concomitant]
  8. CASODEX [Concomitant]
  9. TAMSULOSIN [Concomitant]
  10. DIGOXIN [Concomitant]
  11. ELIGARD [Concomitant]

REACTIONS (3)
  - ABDOMINAL PAIN UPPER [None]
  - GASTROINTESTINAL DISORDER [None]
  - FLATULENCE [None]
